FAERS Safety Report 8378589-X (Version None)
Quarter: 2012Q2

REPORT INFORMATION
  Report Type: 
  Country: None (occurrence: None)
  Receive Date: 20120522
  Receipt Date: 20110603
  Transmission Date: 20120825
  Serious: No
  Sender: FDA-Public Use
  Company Number: US-ASTRAZENECA-2011SE34203

PATIENT
  Age: 61 Year
  Sex: Female
  Weight: 49.9 kg

DRUGS (4)
  1. NEURONTIN [Concomitant]
     Indication: NEURALGIA
     Dosage: 12 DAILY
     Dates: start: 20010101
  2. PRILOSEC [Suspect]
     Indication: GASTROOESOPHAGEAL REFLUX DISEASE
     Dosage: 1 TO 2 CAPSULES PER DAY
     Route: 048
     Dates: start: 19910101
  3. PRILOSEC [Suspect]
     Route: 048
  4. BONIVA [Concomitant]
     Indication: OSTEOPOROSIS
     Dosage: 3 MONTHLY
     Route: 042
     Dates: start: 20090101

REACTIONS (5)
  - OSTEOPOROSIS [None]
  - UNDERDOSE [None]
  - KYPHOSIS [None]
  - GASTROOESOPHAGEAL REFLUX DISEASE [None]
  - AMNESIA [None]
